FAERS Safety Report 7437651-6 (Version None)
Quarter: 2011Q2

REPORT INFORMATION
  Report Type: 
  Country: None (occurrence: None)
  Receive Date: 20110426
  Receipt Date: 20110420
  Transmission Date: 20111010
  Serious: No
  Sender: FDA-Public Use
  Company Number: US-PFIZER INC-2011083637

PATIENT
  Sex: Female
  Weight: 56.689 kg

DRUGS (2)
  1. INTERFERON BETA-1A [Concomitant]
     Indication: MULTIPLE SCLEROSIS
     Dosage: UNK
  2. ZITHROMAX [Suspect]
     Indication: SINUSITIS
     Dosage: 250 MG, UNK
     Route: 048
     Dates: start: 20110412, end: 20110414

REACTIONS (1)
  - PRODUCT TASTE ABNORMAL [None]
